FAERS Safety Report 6519994-3 (Version None)
Quarter: 2009Q4

REPORT INFORMATION
  Report Type: 
  Country: None (occurrence: None)
  Receive Date: 20091229
  Receipt Date: 20091222
  Transmission Date: 20100525
  Serious: Yes (Hospitalization)
  Sender: FDA-Public Use
  Company Number: BR-B.I. PHARMACEUTICALS,INC./RIDGEFIELD-2009-BR-01305BR

PATIENT
  Sex: Male

DRUGS (2)
  1. SPIRIVA [Suspect]
     Dosage: NR
     Dates: start: 20091021
  2. LIPITOR [Concomitant]
     Dosage: 40 MG
     Dates: start: 20070101

REACTIONS (1)
  - AORTIC ANEURYSM [None]
